FAERS Safety Report 5012791-X (Version None)
Quarter: 2006Q2

REPORT INFORMATION
  Report Type: 
  Country: None (occurrence: None)
  Receive Date: 20060530
  Receipt Date: 20060308
  Transmission Date: 20061013
  Serious: No
  Sender: FDA-Public Use
  Company Number: US-BRISTOL-MYERS SQUIBB COMPANY-13307459

PATIENT
  Age: 68 Year
  Sex: Male
  Weight: 82 kg

DRUGS (7)
  1. ERBITUX [Suspect]
     Indication: NON-SMALL CELL LUNG CANCER
     Dosage: 100MG/50ML
     Route: 042
     Dates: start: 20060228, end: 20060228
  2. BENADRYL [Concomitant]
     Indication: PREMEDICATION
     Route: 042
     Dates: start: 20060228, end: 20060228
  3. ZANTAC [Concomitant]
     Indication: PREMEDICATION
     Route: 042
     Dates: start: 20060228, end: 20060228
  4. SOLU-CORTEF [Concomitant]
     Indication: PREMEDICATION
     Route: 042
     Dates: start: 20060228, end: 20060228
  5. ALIMTA [Concomitant]
     Dates: start: 20060228
  6. PREVACID [Concomitant]
     Dates: start: 20020101
  7. FOLIC ACID [Concomitant]
     Dates: start: 20060222

REACTIONS (1)
  - RASH [None]
